FAERS Safety Report 16089883 (Version 1)
Quarter: 2019Q2

REPORT INFORMATION
  Report Type: Spontaneous
  Country: US (occurrence: US)
  Receive Date: 20190319
  Receipt Date: 20190319
  Transmission Date: 20190711
  Serious: Yes (Hospitalization)
  Sender: FDA-Public Use
  Company Number: None

PATIENT
  Sex: Female

DRUGS (8)
  1. MAGNESIUM GL TAB 500MG [Concomitant]
  2. NALTREXONE TAB 50MG [Concomitant]
  3. VITAMIN B-12 TAB 2000MCG [Concomitant]
  4. BORAGE 1000 CAP [Concomitant]
  5. VITAMIN D CAP 50000UNT [Concomitant]
  6. SOYBEAN OIL [Concomitant]
     Active Substance: SOYBEAN OIL
  7. HUMIRA [Suspect]
     Active Substance: ADALIMUMAB
     Indication: SPONDYLOARTHROPATHY
     Dosage: ?          OTHER FREQUENCY:EVERY 2 WEEKS;?
     Route: 058
     Dates: start: 20180605
  8. FISH OIL CAP 1200MG [Concomitant]

REACTIONS (2)
  - Therapy cessation [None]
  - Surgery [None]
